FAERS Safety Report 9715366 (Version 1)
Quarter: 2013Q4

REPORT INFORMATION
  Report Type: Spontaneous
  Country: DE (occurrence: DE)
  Receive Date: 20131127
  Receipt Date: 20131127
  Transmission Date: 20140711
  Serious: Yes (Hospitalization)
  Sender: FDA-Public Use
  Company Number: DE-DRREDDYS-GER/GER/13/0035682

PATIENT
  Age: 23 Year
  Sex: Female

DRUGS (4)
  1. VENLAFAXINE [Suspect]
     Indication: DEPRESSION
     Route: 048
     Dates: start: 20130708, end: 20130720
  2. VENLAFAXINE [Suspect]
     Route: 048
     Dates: start: 20130721, end: 20130813
  3. VENLAFAXINE [Suspect]
     Route: 048
     Dates: start: 20130814, end: 20130821
  4. VENLAFAXINE [Suspect]
     Route: 048
     Dates: start: 20130822, end: 20130822

REACTIONS (1)
  - Dermatitis allergic [Recovered/Resolved]
